FAERS Safety Report 25230681 (Version 1)
Quarter: 2025Q2

REPORT INFORMATION
  Report Type: Spontaneous
  Country: US (occurrence: US)
  Receive Date: 20250423
  Receipt Date: 20250423
  Transmission Date: 20250716
  Serious: No
  Sender: SANOFI AVENTIS
  Company Number: US-SA-2025SA115952

PATIENT
  Age: 54 Year
  Sex: Female
  Weight: 90.91 kg

DRUGS (3)
  1. DUPIXENT [Suspect]
     Active Substance: DUPILUMAB
     Indication: Dermatitis atopic
     Dosage: 300 MG, QOW
     Route: 058
  2. VENOFER [Concomitant]
     Active Substance: IRON SUCROSE
  3. TRAZODONE HCL [Concomitant]
     Active Substance: TRAZODONE HYDROCHLORIDE

REACTIONS (4)
  - Anaemia [Unknown]
  - Blood iron decreased [Unknown]
  - Serum ferritin decreased [Unknown]
  - Fatigue [Unknown]

NARRATIVE: CASE EVENT DATE: 20250101
